FAERS Safety Report 7217549-9 (Version None)
Quarter: 2011Q1

REPORT INFORMATION
  Report Type: 
  Country: None (occurrence: None)
  Receive Date: 20110110
  Receipt Date: 20101231
  Transmission Date: 20110831
  Serious: Yes (Death)
  Sender: FDA-Public Use
  Company Number: US-PFIZER INC-2011004578

PATIENT
  Age: 23 Year
  Sex: Male

DRUGS (5)
  1. ACETAMINOPHEN W/ CODEINE [Suspect]
     Route: 048
  2. MARIJUANA [Suspect]
     Route: 048
  3. TRAMADOL [Suspect]
     Route: 048
  4. ALPRAZOLAM [Suspect]
     Route: 048
  5. METHADONE [Suspect]
     Route: 048

REACTIONS (1)
  - DRUG ABUSE [None]
